FAERS Safety Report 20756710 (Version 1)
Quarter: 2022Q2

REPORT INFORMATION
  Report Type: Report from Study
  Country: GB (occurrence: GB)
  Receive Date: 20220427
  Receipt Date: 20220427
  Transmission Date: 20220721
  Serious: Yes (Death, Other)
  Sender: FDA-Public Use
  Company Number: GB-CELGENE-GBR-20220205705

PATIENT
  Age: 84 Year
  Sex: Female

DRUGS (1)
  1. LENALIDOMIDE [Suspect]
     Active Substance: LENALIDOMIDE
     Indication: Plasma cell myeloma
     Dosage: FREQUENCY TEXT: AS PER PROTOCOL
     Route: 048
     Dates: start: 20141106, end: 20220208

REACTIONS (2)
  - Bronchiectasis [Fatal]
  - Asthenia [Fatal]

NARRATIVE: CASE EVENT DATE: 20220208
